FAERS Safety Report 5135515-4 (Version None)
Quarter: 2006Q4

REPORT INFORMATION
  Report Type: 
  Country: None (occurrence: None)
  Receive Date: 20061024
  Receipt Date: 20061024
  Transmission Date: 20070319
  Serious: Yes (Hospitalization)
  Sender: FDA-Public Use
  Company Number: None

PATIENT
  Age: 76 Year
  Sex: Male
  Weight: 53.5244 kg

DRUGS (15)
  1. TERAZOSIN HCL [Suspect]
     Dosage: 2 MG Q HS
     Route: 048
  2. LISINOPRIL [Suspect]
     Dosage: 5 MG DAILY
     Route: 048
  3. ISOSORBIDE DINITRATE EXTENDED-RELEASE [Suspect]
  4. NITROGLYCERIN [Suspect]
     Dosage: DAILY
     Route: 062
  5. CLONAZEPAM [Suspect]
     Dosage: 1 MG BID
     Route: 048
  6. HYDROCODONE BITARTRATE + ACETAMINOPHEN [Suspect]
     Dosage: 1 Q 6 HR PRN
     Route: 048
  7. VENLAFAXINE HCL [Suspect]
     Dosage: 100 MG BID
     Route: 048
  8. SIMVASTATIN [Concomitant]
  9. FERO-FOLIC-500 [Concomitant]
  10. ISOSORBIDE MONONITRATE [Concomitant]
  11. DOXEPIN HCL [Concomitant]
  12. FAMOTIDINE [Concomitant]
  13. LEVABUTEROL TART [Concomitant]
  14. ALBUTEROL 3/IPRATROP 0.5MG/3ML [Concomitant]
  15. OMEPRAZOLE [Concomitant]

REACTIONS (3)
  - ASTHENIA [None]
  - FALL [None]
  - HYPOTENSION [None]
